FAERS Safety Report 7979786-5 (Version None)
Quarter: 2011Q4

REPORT INFORMATION
  Report Type: 
  Country: None (occurrence: None)
  Receive Date: 20111214
  Receipt Date: 20111208
  Transmission Date: 20120403
  Serious: Yes (Death)
  Sender: FDA-Public Use
  Company Number: US-CELGENEUS-163-21880-11121192

PATIENT
  Sex: Male

DRUGS (15)
  1. REVLIMID [Suspect]
     Dosage: 15 MILLIGRAM
     Route: 048
     Dates: start: 20100501
  2. AMLODIPINE [Concomitant]
     Dosage: 10 MILLIGRAM
     Route: 048
  3. REVLIMID [Suspect]
     Indication: MULTIPLE MYELOMA
     Dosage: 25 MILLIGRAM
     Route: 048
     Dates: start: 20090301
  4. CIPROFLOXACIN [Concomitant]
     Dosage: 100 MILLIGRAM
     Route: 048
  5. IRON [Concomitant]
     Dosage: 325 MILLIGRAM
     Route: 048
  6. FLONASE [Concomitant]
     Dosage: .05 PERCENT
     Route: 065
  7. GLIPIZIDE [Concomitant]
     Dosage: 10 MILLIGRAM
     Route: 048
  8. VITAMIN E [Concomitant]
     Dosage: 1000 UNIT
     Route: 048
  9. ACYCLOVIR [Concomitant]
     Dosage: 200 MILLIGRAM
     Route: 048
  10. CALCIUM [Concomitant]
     Dosage: 600
     Route: 048
  11. ASPIRIN [Concomitant]
     Dosage: 81 MILLIGRAM
     Route: 048
  12. DEXAMETHASONE [Concomitant]
     Dosage: 1.5 MILLIGRAM
     Route: 048
  13. POTASSIUM CHLORIDE [Concomitant]
     Dosage: 25 MILLIGRAM
     Route: 048
  14. REVLIMID [Suspect]
     Dosage: 15 MILLIGRAM
     Route: 048
     Dates: start: 20110901, end: 20110101
  15. VELCADE [Concomitant]
     Dosage: 3.5 MILLIGRAM
     Route: 065

REACTIONS (8)
  - BRONCHITIS [None]
  - PULMONARY CONGESTION [None]
  - MULTIPLE MYELOMA [None]
  - DEATH [None]
  - NEUROPATHY PERIPHERAL [None]
  - PYREXIA [None]
  - NASAL CONGESTION [None]
  - NEOPLASM PROGRESSION [None]
